FAERS Safety Report 7676929-8 (Version None)
Quarter: 2011Q3

REPORT INFORMATION
  Report Type: 
  Country: None (occurrence: None)
  Receive Date: 20110811
  Receipt Date: 20110802
  Transmission Date: 20111222
  Serious: Yes (Hospitalization, Disabling, Other)
  Sender: FDA-Public Use
  Company Number: PHFR2011IE03963

PATIENT
  Sex: Female

DRUGS (3)
  1. CLOZAPINE [Suspect]
     Indication: SCHIZOPHRENIA
     Dosage: 550 MG, QD
     Route: 048
     Dates: start: 19981005
  2. SERTRALINE HYDROCHLORIDE [Concomitant]
     Dosage: 100 MG/DAY
     Route: 048
  3. NEUPOGEN [Concomitant]
     Dosage: UNK
     Route: 065

REACTIONS (8)
  - DISCOMFORT [None]
  - AGRANULOCYTOSIS [None]
  - NEUTROPHIL COUNT INCREASED [None]
  - NON-HODGKIN'S LYMPHOMA [None]
  - NEUTROPHIL COUNT DECREASED [None]
  - LOCAL SWELLING [None]
  - WHITE BLOOD CELL COUNT INCREASED [None]
  - WHITE BLOOD CELL COUNT DECREASED [None]
